FAERS Safety Report 17815250 (Version 1)
Quarter: 2020Q2

REPORT INFORMATION
  Report Type: Report from Study
  Country: IE (occurrence: IE)
  Receive Date: 20200522
  Receipt Date: 20200522
  Transmission Date: 20200714
  Serious: Yes (Death)
  Sender: FDA-Public Use
  Company Number: IE-BAYER-2020-091452

PATIENT
  Age: 65 Year
  Sex: Female

DRUGS (1)
  1. BETAFERON [Suspect]
     Active Substance: INTERFERON BETA-1B
     Dosage: 250 ?G, QOD
     Route: 058
     Dates: start: 20090225

REACTIONS (1)
  - Death [Fatal]

NARRATIVE: CASE EVENT DATE: 20190806
